FAERS Safety Report 8226078 (Version 6)
Quarter: 2012Q4

REPORT INFORMATION
  Report Type: 
  Country: GB (occurrence: GB)
  Receive Date: 20111103
  Receipt Date: 20120928
  Transmission Date: 20130627
  Serious: Yes (Death, Hospitalization, Other)
  Sender: FDA-Public Use
  Company Number: GB-ABBOTT-11P-167-0870723-00

PATIENT
  Age: 40 None
  Sex: Male
  Weight: 104 kg

DRUGS (24)
  1. HUMIRA [Suspect]
     Indication: CROHN^S DISEASE
     Route: 058
     Dates: start: 20111005, end: 20111019
  2. HUMIRA [Suspect]
     Route: 058
     Dates: start: 20111027
  3. HUMIRA [Suspect]
  4. CLARITHROMYCIN [Interacting]
     Indication: PHARYNGITIS
     Route: 048
     Dates: start: 20111028, end: 20111030
  5. CLARITHROMYCIN [Interacting]
     Indication: UPPER RESPIRATORY TRACT INFECTION
  6. CLARITHROMYCIN [Interacting]
     Indication: LOWER RESPIRATORY TRACT INFECTION
  7. METHADONE [Interacting]
     Indication: ABDOMINAL PAIN
     Dosage: Cumulative dose to first reaction: 270 mg
     Route: 048
  8. METHADONE [Interacting]
     Indication: CROHN^S DISEASE
     Route: 048
     Dates: start: 20111028, end: 20111030
  9. METHADONE [Interacting]
     Indication: PAIN MANAGEMENT
     Route: 048
     Dates: start: 20111027, end: 20111027
  10. ORAMORPH [Concomitant]
     Indication: ABDOMINAL PAIN
     Dosage: Divided
     Route: 048
     Dates: start: 201102, end: 20111027
  11. ORAMORPH [Concomitant]
     Indication: CROHN^S DISEASE
  12. ADCAL D3 [Concomitant]
     Indication: BONE DISORDER
     Route: 048
     Dates: start: 20110808
  13. ADCAL D3 [Concomitant]
     Indication: PROPHYLAXIS
  14. ADCAL D3 [Concomitant]
     Indication: CROHN^S DISEASE
  15. ENSURE MILKSHAKE [Concomitant]
     Indication: NUTRITIONAL SUPPORT
     Route: 048
     Dates: start: 20110105
  16. ASCORBIC ACID [Concomitant]
     Indication: PRODUCT USED FOR UNKNOWN INDICATION
     Dosage: 1000 + 10mg (ZINC) two tablets daily
     Dates: start: 20111006
  17. MULTIVITAMIN [Concomitant]
     Indication: NUTRITIONAL SUPPORT
     Dates: start: 20110623
  18. PARACETAMOL [Concomitant]
     Indication: PAIN
     Dosage: Long standing QDS - As required (PRN)
  19. HYDROXYCOBALAMIN [Concomitant]
     Indication: VITAMIN D DEFICIENCY
     Dates: end: 20110823
  20. MST CONTINUS [Concomitant]
     Indication: PAIN
     Dosage: ON
     Route: 048
     Dates: end: 20110818
  21. LANSOPRAZOLE [Concomitant]
     Indication: DYSPEPSIA
     Dates: start: 20070219
  22. LANSOPRAZOLE [Concomitant]
     Indication: GASTRITIS
     Route: 048
     Dates: start: 20111019
  23. DIAZEPAM [Concomitant]
     Indication: ANXIETY
     Route: 048
     Dates: start: 20111019
  24. VENTOLIN [Concomitant]
     Indication: PRODUCT USED FOR UNKNOWN INDICATION
     Dosage: 100 mcg/puff
     Route: 055

REACTIONS (22)
  - Toxicity to various agents [Fatal]
  - Potentiating drug interaction [Fatal]
  - Inhibitory drug interaction [Fatal]
  - Diffuse alveolar damage [Fatal]
  - Crohn^s disease [Fatal]
  - Pyrexia [Not Recovered/Not Resolved]
  - Malaise [Unknown]
  - Diplopia [Unknown]
  - Dizziness [Unknown]
  - Chest pain [Unknown]
  - Inflammatory marker increased [Unknown]
  - Oropharyngeal pain [Unknown]
  - Headache [Unknown]
  - Vomiting [Unknown]
  - Dysuria [Unknown]
  - Hiccups [Unknown]
  - Confusional state [Unknown]
  - Aggression [Unknown]
  - Dysarthria [Unknown]
  - Crohn^s disease [Unknown]
  - Pneumonitis [Unknown]
  - Influenza [Unknown]
